FAERS Safety Report 13371222 (Version 2)
Quarter: 2017Q2

REPORT INFORMATION
  Report Type: Spontaneous
  Country: DE (occurrence: DE)
  Receive Date: 20170324
  Receipt Date: 20170426
  Transmission Date: 20170830
  Serious: Yes (Disabling)
  Sender: FDA-Public Use
  Company Number: GXKR2017DE001862

PATIENT
  Age: 47 Year
  Sex: Female

DRUGS (1)
  1. PENHEXAL MEGA [Suspect]
     Active Substance: PENICILLIN V BENZATHINE
     Indication: BACTERIAL INFECTION
     Dosage: 1 DF, TID
     Route: 048

REACTIONS (1)
  - Vertigo [Recovering/Resolving]

NARRATIVE: CASE EVENT DATE: 20170215
